FAERS Safety Report 8384267-3 (Version None)
Quarter: 2012Q2

REPORT INFORMATION
  Report Type: 
  Country: None (occurrence: None)
  Receive Date: 20120524
  Receipt Date: 20120515
  Transmission Date: 20120825
  Serious: Yes (Hospitalization, Other)
  Sender: FDA-Public Use
  Company Number: US-ASTRAZENECA-2012SE31130

PATIENT
  Age: 40 Year
  Sex: Female
  Weight: 104.3 kg

DRUGS (9)
  1. SEROQUEL [Suspect]
     Indication: SLEEP DISORDER
     Route: 048
  2. NEXIUM [Suspect]
     Indication: GASTROOESOPHAGEAL REFLUX DISEASE
     Route: 048
     Dates: start: 20090801
  3. XANAX [Concomitant]
  4. SEROQUEL [Suspect]
     Route: 048
  5. PRILOSEC OTC [Suspect]
     Route: 048
  6. HYDROCODONE [Concomitant]
     Indication: ANALGESIC THERAPY
     Dosage: 10-325
  7. SEROQUEL [Suspect]
     Route: 048
  8. XANAX [Concomitant]
     Indication: ADJUSTMENT DISORDER
  9. SEROQUEL [Suspect]
     Indication: BIPOLAR DISORDER
     Route: 048

REACTIONS (15)
  - DISTURBANCE IN SOCIAL BEHAVIOUR [None]
  - CRYING [None]
  - GASTROOESOPHAGEAL REFLUX DISEASE [None]
  - DYSPEPSIA [None]
  - NAUSEA [None]
  - DRUG INEFFECTIVE [None]
  - MALAISE [None]
  - HERNIA [None]
  - PSYCHIATRIC SYMPTOM [None]
  - VOMITING [None]
  - EMOTIONAL DISORDER [None]
  - INSOMNIA [None]
  - INTENTIONAL DRUG MISUSE [None]
  - DRUG WITHDRAWAL SYNDROME [None]
  - INTESTINAL PERFORATION [None]
